FAERS Safety Report 6558203-6 (Version None)
Quarter: 2010Q1

REPORT INFORMATION
  Report Type: 
  Country: None (occurrence: None)
  Receive Date: 20100126
  Receipt Date: 20100113
  Transmission Date: 20100710
  Serious: Yes (Other)
  Sender: FDA-Public Use
  Company Number: 2010AC000064

PATIENT
  Age: 36 Year
  Sex: Male

DRUGS (20)
  1. DIGOXIN [Suspect]
     Dosage: 250 MCG; PO
     Route: 048
     Dates: start: 20021208
  2. HYDROCODONE [Concomitant]
  3. DOXYCYCLINE [Concomitant]
  4. SULFAMETHOSAZOLE/TMP [Concomitant]
  5. ENALAPRIL MALEATE [Concomitant]
  6. WARFARIN [Concomitant]
  7. LISINOPRIL [Concomitant]
  8. ERYTHROMYCIN [Concomitant]
  9. TRIAMCINOLONE [Concomitant]
  10. ATENOLOL [Concomitant]
  11. AMBIEN [Concomitant]
  12. RISPERDAL [Concomitant]
  13. AMIODARONE HCL [Concomitant]
  14. LEVOTHROID [Concomitant]
  15. PRIMIDONE [Concomitant]
  16. ZYPREXA [Concomitant]
  17. AMOXICILLIN [Concomitant]
  18. CYCLOBENZAPRINE [Concomitant]
  19. PRILOSEC [Concomitant]
  20. COREG [Concomitant]

REACTIONS (6)
  - ANXIETY [None]
  - ECONOMIC PROBLEM [None]
  - EMOTIONAL DISTRESS [None]
  - FAMILY STRESS [None]
  - MULTIPLE INJURIES [None]
  - PARTNER STRESS [None]
